FAERS Safety Report 4436667-1 (Version None)
Quarter: 2004Q3

REPORT INFORMATION
  Report Type: 
  Country: None (occurrence: None)
  Receive Date: 20040830
  Receipt Date: 20040818
  Transmission Date: 20050211
  Serious: Yes (Life-Threatening)
  Sender: FDA-Public Use
  Company Number: JP-BRISTOL-MYERS SQUIBB COMPANY-12676383

PATIENT
  Age: 77 Year
  Sex: Female

DRUGS (1)
  1. MAXIPIME [Suspect]
     Indication: PYREXIA
     Route: 041
     Dates: start: 20040806, end: 20040807

REACTIONS (1)
  - INTERSTITIAL LUNG DISEASE [None]
